FAERS Safety Report 5194151-4 (Version None)
Quarter: 2006Q4

REPORT INFORMATION
  Report Type: 
  Country: None (occurrence: None)
  Receive Date: 20061222
  Receipt Date: 20061220
  Transmission Date: 20070319
  Serious: Yes (Hospitalization)
  Sender: FDA-Public Use
  Company Number: HQWYE940130NOV06

PATIENT
  Age: 48 Year
  Sex: Female

DRUGS (4)
  1. MYLOTARG [Suspect]
     Indication: ACUTE MYELOID LEUKAEMIA
     Dates: start: 20040501, end: 20040101
  2. OXYCONTIN [Concomitant]
  3. PREVACID [Concomitant]
  4. PAXIL [Concomitant]

REACTIONS (8)
  - CHOLELITHIASIS [None]
  - CONDITION AGGRAVATED [None]
  - DIZZINESS [None]
  - FATIGUE [None]
  - PLATELET AGGREGATION [None]
  - PLATELET COUNT DECREASED [None]
  - SPLEEN DISORDER [None]
  - TRANSIENT ISCHAEMIC ATTACK [None]
